FAERS Safety Report 20544845 (Version 1)
Quarter: 2022Q1

REPORT INFORMATION
  Report Type: Spontaneous
  Country: US (occurrence: US)
  Receive Date: 20220303
  Receipt Date: 20220303
  Transmission Date: 20220423
  Serious: Yes (Life-Threatening, Hospitalization, Other)
  Sender: FDA-Public Use
  Company Number: US-CELLTRION INC.-2022US002228

PATIENT

DRUGS (2)
  1. RITUXIMAB [Suspect]
     Active Substance: RITUXIMAB
     Indication: Neuromyelitis optica spectrum disorder
  2. INEBILIZUMAB [Suspect]
     Active Substance: INEBILIZUMAB
     Indication: Neuromyelitis optica spectrum disorder
     Route: 042

REACTIONS (36)
  - Appendicitis perforated [Unknown]
  - Neuromyelitis optica spectrum disorder [Unknown]
  - Central nervous system lesion [Unknown]
  - Expanded disability status scale score increased [Unknown]
  - Cellulitis [Unknown]
  - Myelitis [Unknown]
  - Nasopharyngitis [Unknown]
  - Urinary tract infection [Unknown]
  - Eye pain [Unknown]
  - Fall [Unknown]
  - Haematuria [Unknown]
  - Leukocytosis [Unknown]
  - Ligament sprain [Unknown]
  - Adjustment disorder with depressed mood [Unknown]
  - Constipation [Unknown]
  - Weight decreased [Unknown]
  - Anxiety [Unknown]
  - Arthralgia [Unknown]
  - B-lymphocyte count decreased [Unknown]
  - Bronchitis [Unknown]
  - Cough [Unknown]
  - Dyspnoea [Unknown]
  - Fatigue [Unknown]
  - Headache [Unknown]
  - Influenza [Unknown]
  - Infusion related reaction [Unknown]
  - Musculoskeletal pain [Unknown]
  - Nausea [Unknown]
  - Paraesthesia [Unknown]
  - Peripheral swelling [Unknown]
  - Rash pruritic [Unknown]
  - Tooth abscess [Unknown]
  - Upper respiratory tract infection [Unknown]
  - Vision blurred [Unknown]
  - Vomiting [Unknown]
  - Off label use [Unknown]
